FAERS Safety Report 7773576-4 (Version None)
Quarter: 2011Q3

REPORT INFORMATION
  Report Type: 
  Country: None (occurrence: None)
  Receive Date: 20110923
  Receipt Date: 20110915
  Transmission Date: 20111222
  Serious: Yes (Hospitalization)
  Sender: FDA-Public Use
  Company Number: FR-BIOGENIDEC-2011BI011099

PATIENT
  Age: 29 Year
  Sex: Male
  Weight: 87 kg

DRUGS (5)
  1. TYSABRI [Suspect]
     Indication: MULTIPLE SCLEROSIS
     Route: 042
     Dates: start: 20090421
  2. BRICANYL [Concomitant]
  3. ALBUTEROL [Concomitant]
     Indication: ASTHMA
     Dates: start: 20091015
  4. BACLOFEN [Concomitant]
     Indication: MUSCLE SPASTICITY
     Dates: start: 20090401
  5. ATROVENT [Concomitant]

REACTIONS (4)
  - ASTHMA [None]
  - ACARODERMATITIS [None]
  - HERPES ZOSTER [None]
  - VARICELLA [None]
